FAERS Safety Report 7177761-4 (Version None)
Quarter: 2010Q4

REPORT INFORMATION
  Report Type: 
  Country: None (occurrence: None)
  Receive Date: 20101220
  Receipt Date: 20101212
  Transmission Date: 20110411
  Serious: Yes (Death)
  Sender: FDA-Public Use
  Company Number: US-ALEXION-A201001592

PATIENT
  Age: 30 Year
  Sex: Female

DRUGS (4)
  1. SOLIRIS [Suspect]
     Indication: HAEMOLYSIS
     Dosage: 900 MG, SINGLE
     Route: 042
     Dates: start: 20101208, end: 20101208
  2. PLASMA [Concomitant]
     Dosage: UNK
  3. BLOOD TRANSFUSION, AUXILIARY PRODUCTS [Concomitant]
  4. CORTICOSTEROIDS [Concomitant]

REACTIONS (5)
  - ELECTROMECHANICAL DISSOCIATION [None]
  - HYPOPERFUSION [None]
  - LACTIC ACIDOSIS [None]
  - RENAL FAILURE [None]
  - RESPIRATORY FAILURE [None]
